FAERS Safety Report 17723122 (Version 1)
Quarter: 2020Q2

REPORT INFORMATION
  Report Type: Spontaneous
  Country: US (occurrence: US)
  Receive Date: 20200428
  Receipt Date: 20200428
  Transmission Date: 20200714
  Serious: Yes (Other)
  Sender: FDA-Public Use
  Company Number: None

PATIENT
  Age: 25 Year
  Sex: Female
  Weight: 54 kg

DRUGS (6)
  1. ALBUTEROL INHALER [Concomitant]
     Active Substance: ALBUTEROL
  2. FLUTICASONE PROPRIONATE NASAL SPRAY [Concomitant]
  3. WIXELA INHUB [Concomitant]
     Active Substance: FLUTICASONE PROPIONATE\SALMETEROL XINAFOATE
  4. CUVITRU [Suspect]
     Active Substance: HUMAN IMMUNOGLOBULIN G
     Indication: IMMUNODEFICIENCY
     Dosage: ?          OTHER FREQUENCY:EVERY 2 WEEKS;?
     Route: 058
     Dates: start: 20200325
  5. QUETIAPINE FUMARATE 100MG [Concomitant]
  6. MUPIROCIN 2% [Concomitant]
     Active Substance: MUPIROCIN

REACTIONS (4)
  - Peripheral swelling [None]
  - Headache [None]
  - Dizziness [None]
  - Chest discomfort [None]

NARRATIVE: CASE EVENT DATE: 20200325
